FAERS Safety Report 5158484-X (Version None)
Quarter: 2006Q4

REPORT INFORMATION
  Report Type: 
  Country: None (occurrence: None)
  Receive Date: 20061128
  Receipt Date: 20061108
  Transmission Date: 20070319
  Serious: Yes (Death)
  Sender: FDA-Public Use
  Company Number: JP-ELI_LILLY_AND_COMPANY-JP200611001988

PATIENT
  Age: 55 Year
  Sex: Male
  Weight: 163.5 kg

DRUGS (12)
  1. ZYPREXA [Suspect]
     Indication: SCHIZOPHRENIA
     Dosage: 5 MG, DAILY (1/D)
     Route: 048
     Dates: start: 20051117
  2. DEPAS [Concomitant]
     Dosage: 2MG, DAILY (1/D)
     Route: 048
     Dates: start: 20060223, end: 20060412
  3. DEPAS [Concomitant]
     Dosage: 3 MG, DAILY (1/D)
     Route: 048
     Dates: start: 20060413
  4. NITRAZEPAM [Concomitant]
     Dosage: 10 MG, DAILY (1/D)
     Route: 048
     Dates: start: 20051117
  5. PURSENNID /SCH/ [Concomitant]
     Indication: PROPHYLAXIS
     Dosage: 24MG, DAILY (1/D)
     Route: 048
     Dates: start: 20051117, end: 20051221
  6. PURSENNID /SCH/ [Concomitant]
     Dosage: 36 MG, DAILY (1/D)
     Route: 048
     Dates: start: 20060223
  7. PURSENNID /SCH/ [Concomitant]
     Dosage: 24 MG, DAILY (1/D)
     Route: 048
     Dates: start: 20060202, end: 20060222
  8. LEVOTOMIN [Concomitant]
     Dosage: 50 MG, DAILY (1/D)
     Route: 048
     Dates: start: 20051117
  9. AMOBAN [Concomitant]
     Dosage: 10 MG, DAILY (1/D)
     Route: 048
     Dates: start: 20051117
  10. GASTER D /KOR/ [Concomitant]
     Indication: PROPHYLAXIS
     Dosage: 20 MG, DAILY (1/D)
     Route: 048
     Dates: start: 20051117
  11. MAGLAX                                  /JPN/ [Concomitant]
     Dosage: 1980 MG, DAILY (1/D)
     Route: 048
     Dates: start: 20051117, end: 20060201
  12. MYSLEE [Concomitant]
     Dosage: 10 MG, DAILY (1/D)
     Route: 048
     Dates: start: 20060223

REACTIONS (3)
  - DECUBITUS ULCER [None]
  - PULMONARY EMBOLISM [None]
  - WEIGHT INCREASED [None]
